FAERS Safety Report 16811297 (Version 1)
Quarter: 2019Q3

REPORT INFORMATION
  Report Type: Spontaneous
  Country: JP (occurrence: JP)
  Receive Date: 20190916
  Receipt Date: 20190916
  Transmission Date: 20191005
  Serious: Yes (Other)
  Sender: FDA-Public Use
  Company Number: JP-INCYTE CORPORATION-2019IN009180

PATIENT

DRUGS (1)
  1. JAKAVI [Suspect]
     Active Substance: RUXOLITINIB
     Indication: MYELOFIBROSIS
     Dosage: UNK
     Route: 048

REACTIONS (5)
  - Retroperitoneal cancer [Unknown]
  - Diffuse large B-cell lymphoma [Recovering/Resolving]
  - Abdominal distension [Unknown]
  - Chronic myeloid leukaemia [Unknown]
  - Jaundice [Unknown]
